FAERS Safety Report 11998979 (Version 3)
Quarter: 2016Q2

REPORT INFORMATION
  Report Type: Spontaneous
  Country: JP (occurrence: JP)
  Receive Date: 20160203
  Receipt Date: 20160525
  Transmission Date: 20160815
  Serious: Yes (Other)
  Sender: FDA-Public Use
  Company Number: JP-AMGEN-JPNSP2016012771

PATIENT
  Age: 89 Year
  Sex: Female
  Weight: 40 kg

DRUGS (12)
  1. PRALIA [Suspect]
     Active Substance: DENOSUMAB
     Indication: OSTEOPOROSIS
     Dosage: 60 MG, Q6MO
     Route: 058
     Dates: start: 20140910
  2. PRALIA [Suspect]
     Active Substance: DENOSUMAB
     Indication: SPINAL COMPRESSION FRACTURE
     Dosage: 60 MG, Q6MO
     Route: 058
     Dates: start: 20160127
  3. TAKEPRON [Concomitant]
     Active Substance: LANSOPRAZOLE
     Dosage: 15 MG, QD
     Route: 048
     Dates: start: 2011
  4. PERDIPINE-LA [Concomitant]
     Dosage: 40 MG, BID
     Route: 048
     Dates: start: 2007
  5. NU-LOTAN [Concomitant]
     Active Substance: LOSARTAN POTASSIUM
     Dosage: 50 MG, BID
     Route: 048
     Dates: start: 2012
  6. DENOTAS [Concomitant]
     Active Substance: CALCIUM CARBONATE\CHOLECALCIFEROL\MAGNESIUM CARBONATE
     Dosage: 2 DF, QD
     Route: 048
     Dates: start: 20140910
  7. TRAMCET [Concomitant]
     Active Substance: ACETAMINOPHEN\TRAMADOL
     Dosage: 1 DF, TID
     Route: 048
     Dates: start: 2012
  8. SHAKUYAKUKANZOTO [Concomitant]
     Active Substance: HERBALS
     Dosage: 2 G, QD
     Route: 048
     Dates: start: 20140422
  9. OPALMON [Concomitant]
     Active Substance: LIMAPROST
     Dosage: 5 MUG, TID
     Route: 048
     Dates: start: 2008
  10. MUCOSTA [Concomitant]
     Active Substance: REBAMIPIDE
     Dosage: 100 MG, TID
     Route: 048
     Dates: start: 2008
  11. METHYCOBAL [Concomitant]
     Active Substance: METHYLCOBALAMIN
     Dosage: 500 MUG, TID
     Route: 048
     Dates: start: 2008
  12. DEPAS [Concomitant]
     Active Substance: ETIZOLAM
     Dosage: 0.5 MG, QD
     Route: 048
     Dates: start: 20140422

REACTIONS (1)
  - Osteonecrosis of jaw [Unknown]

NARRATIVE: CASE EVENT DATE: 201510
